FAERS Safety Report 9437881 (Version 4)
Quarter: 2013Q4

REPORT INFORMATION
  Report Type: Report from Study
  Country: JP (occurrence: JP)
  Receive Date: 20130802
  Receipt Date: 20131016
  Transmission Date: 20140711
  Serious: Yes (Death, Hospitalization)
  Sender: FDA-Public Use
  Company Number: JP-PFIZER INC-2013207705

PATIENT
  Age: 78 Year
  Sex: Male
  Weight: 72.8 kg

DRUGS (16)
  1. TIGECYCLINE [Suspect]
     Indication: ABDOMINAL ABSCESS
     Dosage: 100 MG, 1X/DAY
     Route: 042
     Dates: start: 20130706, end: 20130706
  2. TIGECYCLINE [Suspect]
     Dosage: 50 MG, 2X/DAY
     Route: 042
     Dates: start: 20130707, end: 20130712
  3. NIVADIL [Concomitant]
     Dosage: 4 MG, 2X/DAY
     Route: 048
     Dates: start: 20120229, end: 20130724
  4. LANSOPRAZOLE [Concomitant]
     Dosage: 15 MG, DAILY
     Route: 048
     Dates: start: 20120310
  5. TULOBUTEROL [Concomitant]
     Dosage: 2 MG, DAILY
     Dates: start: 20120327
  6. LAXOBERON [Concomitant]
     Dosage: 2.5 MG, 2X/DAY
     Route: 048
     Dates: start: 20130314
  7. FERROMIA [Concomitant]
     Dosage: 50 DAILY
     Route: 048
     Dates: start: 20120712
  8. THEODUR [Concomitant]
     Dosage: 1 G, 2X/DAY
     Route: 048
     Dates: start: 20120809
  9. RYUTAN-SHAKAN-TO [Concomitant]
     Dosage: 2.5 G, 3X/DAY
     Route: 048
     Dates: start: 20130704
  10. LASIX [Concomitant]
     Dosage: 20 DAILY
     Route: 048
     Dates: start: 20130704
  11. MEROPENEM [Concomitant]
     Dosage: 0.5 G
     Dates: start: 20130703
  12. INTRALIPOS [Concomitant]
     Dosage: 20% 100 ML
     Dates: start: 20130704
  13. SOLITA-T1 [Concomitant]
     Dosage: 500 ML
     Dates: start: 20130704
  14. ELNEOPA NO.2 [Concomitant]
     Dosage: 1500 ML
     Dates: start: 20130703
  15. THIOSPEN [Concomitant]
     Dosage: 400 MG
     Dates: start: 20130703
  16. ASPARA POTASSIUM [Concomitant]
     Dosage: 10 MEQ
     Dates: start: 20130703

REACTIONS (3)
  - Thrombocytopenia [Recovering/Resolving]
  - Circulatory collapse [Fatal]
  - Septic shock [Fatal]
